FAERS Safety Report 23685000 (Version 5)
Quarter: 2024Q2

REPORT INFORMATION
  Report Type: Report from Study
  Country: CH (occurrence: CH)
  Receive Date: 20240328
  Receipt Date: 20240613
  Transmission Date: 20240715
  Serious: Yes (Hospitalization, Other)
  Sender: FDA-Public Use
  Company Number: CH-ABBVIE-5693275

PATIENT
  Sex: Male

DRUGS (8)
  1. CARBIDOPA\LEVODOPA [Suspect]
     Active Substance: CARBIDOPA\LEVODOPA
     Indication: Parkinson^s disease
     Dosage: MD: 3.0ML, CRD: 1.9 ML/H, ED: 1.00 ML, CRN: 1.2ML/H?FREQUENCY: 24H THERAPY
     Route: 050
     Dates: start: 20240322, end: 20240328
  2. CARBIDOPA\LEVODOPA [Suspect]
     Active Substance: CARBIDOPA\LEVODOPA
     Dosage: MD: 3.0ML, CRD: 2.2 ML/H, ED: 1.00 ML, CRN: 1.5ML/H?FREQUENCY: 24H THERAPY
     Route: 050
     Dates: start: 20240315, end: 20240322
  3. CARBIDOPA\LEVODOPA [Suspect]
     Active Substance: CARBIDOPA\LEVODOPA
     Dosage: MD: 3.0ML, CRD: 1.2 ML/H, ED: 1.00 ML, CRN: 0.9ML/H?FREQUENCY TEXT: 24H THERAPY
     Route: 050
     Dates: start: 20240328, end: 20240410
  4. CARBIDOPA\LEVODOPA [Suspect]
     Active Substance: CARBIDOPA\LEVODOPA
     Dosage: MD: 3.0ML, CRD: 0.9 ML/H, ED: 1.00 ML, CRN: 0.6ML/H/FREQUENCY TEXT: 24H THERAPY
     Route: 050
     Dates: start: 20240410, end: 20240415
  5. CARBIDOPA\LEVODOPA [Suspect]
     Active Substance: CARBIDOPA\LEVODOPA
     Dosage: MD: 3.0ML, CRD: 1.0 ML/H, ED: 1.00 ML, CRN: 0.6ML/H/FREQUENCY TEXT: 24H THERAPY
     Route: 050
     Dates: start: 20240415
  6. CARBIDOPA\LEVODOPA [Suspect]
     Active Substance: CARBIDOPA\LEVODOPA
     Dosage: FREQUENCY TEXT: 24H THERAPY
     Route: 050
     Dates: start: 20221212
  7. CARBIDOPA\LEVODOPA [Suspect]
     Active Substance: CARBIDOPA\LEVODOPA
     Dosage: MD: 3.0ML, CRD: 2.5 ML/H, ED: 1.00 ML, CRN: 1.8ML/H?FREQUENCY: 24H THERAPY
     Route: 050
     Dates: start: 20240228, end: 20240315
  8. MORPHINE [Concomitant]
     Active Substance: MORPHINE
     Indication: Product used for unknown indication

REACTIONS (7)
  - Hyporesponsive to stimuli [Not Recovered/Not Resolved]
  - Dyskinesia [Not Recovered/Not Resolved]
  - Loss of personal independence in daily activities [Not Recovered/Not Resolved]
  - Restlessness [Not Recovered/Not Resolved]
  - Hospitalisation [Not Recovered/Not Resolved]
  - Drug ineffective [Not Recovered/Not Resolved]
  - Therapeutic product effect decreased [Not Recovered/Not Resolved]
